FAERS Safety Report 5443273-9 (Version None)
Quarter: 2007Q3

REPORT INFORMATION
  Report Type: 
  Country: None (occurrence: None)
  Receive Date: 20070830
  Receipt Date: 20070822
  Transmission Date: 20080115
  Serious: Yes (Other)
  Sender: FDA-Public Use
  Company Number: 2007JP003930

PATIENT
  Age: 66 Year
  Sex: Female

DRUGS (7)
  1. PROGRAF [Suspect]
     Dosage: 3 MG, /D, ORAL
     Route: 048
     Dates: start: 20060801, end: 20070713
  2. ZANTAC [Suspect]
     Dates: end: 20070713
  3. BAKTAR(SULFAMETHOXAZOLE, TRIMETHOPRIM) FORMULATION UNKNOWN [Suspect]
     Dates: end: 20070713
  4. BONALON(ALENDRONIC ACID) FORM [Suspect]
     Dates: end: 20070713
  5. TICLOPIDINE HCL [Concomitant]
  6. CRESTOR [Concomitant]
  7. PREDNISOLONE [Concomitant]

REACTIONS (1)
  - APLASTIC ANAEMIA [None]
